FAERS Safety Report 15225523 (Version 1)
Quarter: 2018Q3

REPORT INFORMATION
  Report Type: Report from Study
  Country: ES (occurrence: ES)
  Receive Date: 20180801
  Receipt Date: 20180801
  Transmission Date: 20181010
  Serious: Yes (Hospitalization)
  Sender: FDA-Public Use
  Company Number: ES-TEVA-2018-ES-933655

PATIENT
  Age: 13 Year
  Sex: Male
  Weight: 93 kg

DRUGS (9)
  1. ACICLOVIR ARISTO 800 MG COMPRIMIDOS DISPERSABLES EFG , 35 COMPRIMIDOS [Concomitant]
     Indication: PROPHYLAXIS
     Route: 048
     Dates: start: 20170615
  2. VINCRISTINA SULFATO (809SU) [Suspect]
     Active Substance: VINCRISTINE SULFATE
     Indication: ACUTE LYMPHOCYTIC LEUKAEMIA
     Route: 042
     Dates: start: 20171004, end: 20171008
  3. DEXAMETASONA (722A) [Suspect]
     Active Substance: DEXAMETHASONE
     Indication: ACUTE LYMPHOCYTIC LEUKAEMIA
     Route: 042
     Dates: start: 20171004, end: 20171010
  4. FOLINATO CALCIO (1587CO) [Concomitant]
     Dosage: 32 MILLIGRAM DAILY;
     Route: 042
     Dates: start: 20171005, end: 20171006
  5. MERCAPTOPURINA (405A) [Suspect]
     Active Substance: MERCAPTOPURINE
     Indication: ACUTE LYMPHOCYTIC LEUKAEMIA
     Dosage: 200 MILLIGRAM DAILY;
     Route: 048
     Dates: start: 20171004, end: 20171008
  6. CITARABINA (124A) [Suspect]
     Active Substance: CYTARABINE
     Indication: ACUTE LYMPHOCYTIC LEUKAEMIA
     Route: 042
     Dates: start: 20171008, end: 20171009
  7. ERWINA ? ERWINASE 10.000 UI INYECTABLE [REINO UNIDO] [Suspect]
     Active Substance: ASPARAGINASE
     Indication: ACUTE LYMPHOCYTIC LEUKAEMIA
     Route: 030
     Dates: start: 20171009, end: 20171011
  8. METOTREXATO (418A) [Suspect]
     Active Substance: METHOTREXATE
     Indication: ACUTE LYMPHOCYTIC LEUKAEMIA
     Dosage: 2150 MILLIGRAM DAILY;
     Route: 042
     Dates: start: 20171005, end: 20171006
  9. SEPTRIN FORTE 160 MG/800 MG COMPRIMIDOS, 20 COMPRIMIDOS [Concomitant]
     Active Substance: SULFAMETHOXAZOLE\TRIMETHOPRIM
     Indication: PROPHYLAXIS
     Dosage: 1 DOSAGE FORMS DAILY;
     Route: 048
     Dates: start: 20170615

REACTIONS (3)
  - Staphylococcal infection [Recovered/Resolved]
  - Anal inflammation [Recovered/Resolved]
  - Pancytopenia [Recovered/Resolved]

NARRATIVE: CASE EVENT DATE: 20171011
